FAERS Safety Report 7305027-8 (Version None)
Quarter: 2011Q1

REPORT INFORMATION
  Report Type: 
  Country: None (occurrence: None)
  Receive Date: 20110222
  Receipt Date: 20110211
  Transmission Date: 20110831
  Serious: Yes (Other)
  Sender: FDA-Public Use
  Company Number: ES-NOVOPROD-321537

PATIENT
  Sex: Female

DRUGS (3)
  1. ACTRAPID [Suspect]
     Indication: TYPE 1 DIABETES MELLITUS
     Dosage: UNK
     Route: 058
  2. INSULATARD [Suspect]
     Indication: TYPE 1 DIABETES MELLITUS
     Dosage: UNK
     Route: 058
  3. HUMULINA [Suspect]

REACTIONS (7)
  - HYPOGLYCAEMIA [None]
  - DIABETIC KETOACIDOSIS [None]
  - DRUG EXPOSURE DURING PREGNANCY [None]
  - ABORTION SPONTANEOUS [None]
  - ABORTION INDUCED [None]
  - PREMATURE LABOUR [None]
  - GESTATIONAL HYPERTENSION [None]
